FAERS Safety Report 18758586 (Version 1)
Quarter: 2021Q1

REPORT INFORMATION
  Report Type: Spontaneous
  Country: CA (occurrence: CA)
  Receive Date: 20210119
  Receipt Date: 20210119
  Transmission Date: 20210419
  Serious: Yes (Hospitalization)
  Sender: FDA-Public Use
  Company Number: CA-JNJFOC-A-US2019-191462

PATIENT
  Age: 46 Year
  Sex: Female

DRUGS (10)
  1. TRACLEER [Suspect]
     Active Substance: BOSENTAN
     Indication: PULMONARY ARTERIAL HYPERTENSION
     Dosage: 125 MG, BID
     Route: 048
     Dates: start: 20180301
  2. VIT D [Concomitant]
     Active Substance: VITAMIN D NOS
  3. LASIX [Concomitant]
     Active Substance: FUROSEMIDE
  4. RITUXIMAB. [Concomitant]
     Active Substance: RITUXIMAB
  5. TYLENOL [Concomitant]
     Active Substance: ACETAMINOPHEN
  6. PREDNISONE. [Concomitant]
     Active Substance: PREDNISONE
     Dosage: TAPERING DOSE OF PREDNISONE
  7. SLOW?K [Concomitant]
     Active Substance: POTASSIUM CHLORIDE
  8. FOLIC ACID. [Concomitant]
     Active Substance: FOLIC ACID
  9. PARIET [Concomitant]
     Active Substance: RABEPRAZOLE SODIUM
  10. SEPTRA DS [Concomitant]
     Active Substance: SULFAMETHOXAZOLE\TRIMETHOPRIM
     Dosage: MON, WED, AND FRI

REACTIONS (4)
  - Influenza [Not Recovered/Not Resolved]
  - Colostomy closure [Recovered/Resolved]
  - Adverse event [Recovered/Resolved]
  - Product dose omission issue [Not Recovered/Not Resolved]

NARRATIVE: CASE EVENT DATE: 20190518
